FAERS Safety Report 21551723 (Version 1)
Quarter: 2022Q4

REPORT INFORMATION
  Report Type: Spontaneous
  Country: CN (occurrence: CN)
  Receive Date: 20221103
  Receipt Date: 20221103
  Transmission Date: 20230113
  Serious: Yes (Other)
  Sender: FDA-Public Use
  Company Number: None

PATIENT
  Age: 66 Year
  Sex: Female
  Weight: 61 kg

DRUGS (6)
  1. CYCLOPHOSPHAMIDE [Suspect]
     Active Substance: CYCLOPHOSPHAMIDE
     Indication: Breast cancer female
     Dosage: AT 8:00, 0.9 G, QD, DILUTED WITH 250 ML OF 0.9 % NS
     Route: 041
     Dates: start: 20220208, end: 20220208
  2. CYCLOPHOSPHAMIDE [Suspect]
     Active Substance: CYCLOPHOSPHAMIDE
     Indication: Neoplasm
  3. SODIUM CHLORIDE [Suspect]
     Active Substance: SODIUM CHLORIDE
     Indication: Medication dilution
     Dosage: AT 8:00, 250 ML, QD, USED TO DILUTE 0.9G CYCLOPHOSPHAMIDE
     Route: 041
     Dates: start: 20220208, end: 20220208
  4. SODIUM CHLORIDE [Suspect]
     Active Substance: SODIUM CHLORIDE
     Dosage: AT 8:00, 250 ML, QD,  USED TO DILUTE 140 MG EPIRUBICIN HYDROCHLORIDE
     Route: 041
     Dates: start: 20220208, end: 20220208
  5. EPIRUBICIN HYDROCHLORIDE [Suspect]
     Active Substance: EPIRUBICIN HYDROCHLORIDE
     Indication: Breast cancer female
     Dosage: AT 8:00, 140 MG, QD, DILUTED WITH 250 ML OF 0.9% NS
     Route: 041
     Dates: start: 20220208, end: 20220208
  6. EPIRUBICIN HYDROCHLORIDE [Suspect]
     Active Substance: EPIRUBICIN HYDROCHLORIDE
     Indication: Neoplasm

REACTIONS (1)
  - White blood cell count decreased [Recovered/Resolved]

NARRATIVE: CASE EVENT DATE: 20220218
